FAERS Safety Report 20168409 (Version 1)
Quarter: 2021Q4

REPORT INFORMATION
  Report Type: Spontaneous
  Country: ES (occurrence: ES)
  Receive Date: 20211210
  Receipt Date: 20211210
  Transmission Date: 20220303
  Serious: Yes (Hospitalization)
  Sender: FDA-Public Use
  Company Number: None

PATIENT
  Age: 55 Year
  Sex: Male
  Weight: 93 kg

DRUGS (3)
  1. AJOVY [Suspect]
     Active Substance: FREMANEZUMAB-VFRM
     Indication: Migraine
     Dosage: 225 MG,1 PRE-FILLED SYRINGE OF 1.5 ML
     Route: 058
     Dates: start: 20210505, end: 20211113
  2. ELETRIPTAN HYDROBROMIDE [Suspect]
     Active Substance: ELETRIPTAN HYDROBROMIDE
     Indication: Migraine
     Dosage: 4 TABLETS
     Route: 048
     Dates: start: 20190304, end: 20211115
  3. OLANZAPINE [Concomitant]
     Active Substance: OLANZAPINE
     Indication: Psychiatric symptom
     Dosage: 500 TABLETS
     Route: 048
     Dates: start: 20190107, end: 20211115

REACTIONS (1)
  - Peripheral ischaemia [Recovering/Resolving]

NARRATIVE: CASE EVENT DATE: 20211112
